FAERS Safety Report 8584660-X (Version None)
Quarter: 2012Q3

REPORT INFORMATION
  Report Type: 
  Country: None (occurrence: None)
  Receive Date: 20120810
  Receipt Date: 20120731
  Transmission Date: 20120928
  Serious: Yes (Hospitalization)
  Sender: FDA-Public Use
  Company Number: US-BAYER-2012-045903

PATIENT
  Age: 18 Year
  Sex: Female

DRUGS (6)
  1. ALBUTEROL SULFATE [Concomitant]
     Dosage: 90 ?G, UNK
  2. YASMIN [Suspect]
  3. TYLENOL COLD [Concomitant]
     Dosage: 325 MG, PRN
     Route: 048
  4. YAZ [Suspect]
  5. MOTRIN [Concomitant]
     Dosage: 400 MG, EVERY 6 HOURS AS NEEDED
     Route: 048
  6. FLOVENT [Concomitant]
     Dosage: 110 ?G, UNK

REACTIONS (8)
  - PAIN [None]
  - ANHEDONIA [None]
  - PULMONARY EMBOLISM [None]
  - FEAR [None]
  - ANXIETY [None]
  - EMOTIONAL DISTRESS [None]
  - QUALITY OF LIFE DECREASED [None]
  - INJURY [None]
